FAERS Safety Report 7288314-1 (Version None)
Quarter: 2011Q1

REPORT INFORMATION
  Report Type: 
  Country: None (occurrence: None)
  Receive Date: 20110211
  Receipt Date: 20110131
  Transmission Date: 20110831
  Serious: Yes (Death, Other)
  Sender: FDA-Public Use
  Company Number: JP-ROCHE-757760

PATIENT
  Age: 65 Year
  Sex: Male

DRUGS (5)
  1. AVASTIN [Suspect]
     Indication: LARGE INTESTINE CARCINOMA
     Route: 042
     Dates: start: 20100810, end: 20100921
  2. ELPLAT [Suspect]
     Indication: LARGE INTESTINE CARCINOMA
     Dosage: DOSAGE IS UNCERTAIN; UNKNWON AT THE TIME OF DEATH
     Route: 041
  3. 5-FU [Suspect]
     Indication: LARGE INTESTINE CARCINOMA
     Dosage: INTRAVENOUS BOLOUS; DOSAGE IS UNCERTAIN; UNKNWON AT THE TIME OF DEATH
     Route: 042
  4. LEVOFOLINATE [Concomitant]
     Dosage: DOSAGE IS UNCERTAIN; UNKNWON AT THE TIME OF DEATH
     Route: 041
  5. 5-FU [Suspect]
     Dosage: INTRAVENOUS DRIP, DOSAGE IS UNCERTAIN; UNKNWON AT THE TIME OF DEATH
     Route: 042

REACTIONS (3)
  - INTERSTITIAL LUNG DISEASE [None]
  - PULMONARY ALVEOLAR HAEMORRHAGE [None]
  - RESPIRATORY FAILURE [None]
